FAERS Safety Report 7386215-1 (Version None)
Quarter: 2011Q1

REPORT INFORMATION
  Report Type: 
  Country: None (occurrence: None)
  Receive Date: 20110331
  Receipt Date: 20110328
  Transmission Date: 20110831
  Serious: Yes (Hospitalization)
  Sender: FDA-Public Use
  Company Number: FR-JNJFOC-20110307522

PATIENT
  Age: 96 Year
  Sex: Female

DRUGS (13)
  1. PERINDOPRIL [Concomitant]
     Route: 065
  2. TAVANIC [Suspect]
     Indication: PRODUCT USED FOR UNKNOWN INDICATION
     Route: 048
  3. UVEDOSE [Concomitant]
     Route: 065
  4. FLAGYL [Interacting]
     Indication: PRODUCT USED FOR UNKNOWN INDICATION
     Route: 048
  5. COUMADIN [Interacting]
     Indication: PRODUCT USED FOR UNKNOWN INDICATION
     Route: 048
  6. COLPOTROPHINE [Concomitant]
     Route: 065
  7. FUROSEMIDE [Concomitant]
     Route: 065
  8. CALCIPARINE [Interacting]
     Indication: PRODUCT USED FOR UNKNOWN INDICATION
     Route: 058
  9. BISOPROLOL [Concomitant]
     Route: 065
  10. FERROUS SULFATE TAB [Concomitant]
     Route: 065
  11. LACTULOSE [Concomitant]
     Route: 065
  12. LEVOTHYROX [Concomitant]
     Route: 065
  13. CARTROL [Concomitant]
     Route: 065

REACTIONS (4)
  - RECTAL HAEMORRHAGE [None]
  - SHOCK HAEMORRHAGIC [None]
  - DRUG INTERACTION [None]
  - INTERNATIONAL NORMALISED RATIO INCREASED [None]
